FAERS Safety Report 6773584-6 (Version None)
Quarter: 2010Q2

REPORT INFORMATION
  Report Type: 
  Country: None (occurrence: None)
  Receive Date: 20100614
  Receipt Date: 20100603
  Transmission Date: 20101027
  Serious: Yes (Hospitalization)
  Sender: FDA-Public Use
  Company Number: TPA2010A03241

PATIENT
  Age: 74 Year
  Sex: Female
  Weight: 58.9676 kg

DRUGS (6)
  1. PIOGLITAZONE HCL [Suspect]
     Indication: CEREBROVASCULAR ACCIDENT PROPHYLAXIS
     Dosage: 1 IN 1 D, PER ORAL
     Route: 048
     Dates: start: 20080722
  2. PERINDOPRIL ERBUMINE [Concomitant]
  3. PLAVIX [Concomitant]
  4. WELLBUTRIN [Concomitant]
  5. LIPITOR [Concomitant]
  6. FOSAMAX [Concomitant]

REACTIONS (11)
  - EXOSTOSIS [None]
  - FALL [None]
  - INTERVERTEBRAL DISC PROTRUSION [None]
  - OSTEOARTHRITIS [None]
  - PUBIS FRACTURE [None]
  - RIB FRACTURE [None]
  - SPINAL COMPRESSION FRACTURE [None]
  - SPINAL DEFORMITY [None]
  - SPINAL OSTEOARTHRITIS [None]
  - SPONDYLOLISTHESIS [None]
  - VERTEBRAL FORAMINAL STENOSIS [None]
